FAERS Safety Report 13350035 (Version 2)
Quarter: 2018Q1

REPORT INFORMATION
  Report Type: Spontaneous
  Country: ES (occurrence: ES)
  Receive Date: 20170320
  Receipt Date: 20180302
  Transmission Date: 20180508
  Serious: Yes (Hospitalization, Other)
  Sender: FDA-Public Use
  Company Number: ES-BAUSCH-BL-2017-007060

PATIENT
  Age: 65 Year
  Sex: Female
  Weight: 54 kg

DRUGS (3)
  1. LEDIPASVIR/ SOFOSBUVIR [Suspect]
     Active Substance: LEDIPASVIR\SOFOSBUVIR
     Indication: CHRONIC HEPATITIS C
     Route: 065
     Dates: start: 201506, end: 201509
  2. RIBAVIRIN. [Suspect]
     Active Substance: RIBAVIRIN
     Indication: CHRONIC HEPATITIS C
     Route: 065
     Dates: start: 201506, end: 201509
  3. INSULIN [Concomitant]
     Active Substance: INSULIN NOS
     Indication: TYPE 2 DIABETES MELLITUS

REACTIONS (1)
  - Disseminated tuberculosis [Recovered/Resolved]

NARRATIVE: CASE EVENT DATE: 2015
